FAERS Safety Report 23651648 (Version 1)
Quarter: 2024Q1

REPORT INFORMATION
  Report Type: Report from Study
  Country: IT (occurrence: IT)
  Receive Date: 20240320
  Receipt Date: 20240320
  Transmission Date: 20240409
  Serious: Yes (Other)
  Sender: FDA-Public Use
  Company Number: IT-BRISTOL-MYERS SQUIBB COMPANY-2023-177411

PATIENT

DRUGS (1)
  1. AZACITIDINE [Suspect]
     Active Substance: AZACITIDINE
     Indication: Myelodysplastic syndrome
     Dosage: 300 MILLIGRAM, TWO TIMES A DAY (FIRST 14 DAYS OF EACH 28-DAYTREATMENT CYCLE)
     Route: 048

REACTIONS (2)
  - Gastrointestinal disorder [Unknown]
  - Off label use [Unknown]
